FAERS Safety Report 10182337 (Version 1)
Quarter: 2014Q2

REPORT INFORMATION
  Report Type: Spontaneous
  Country: US (occurrence: None)
  Receive Date: 20140519
  Receipt Date: 20140519
  Transmission Date: 20141212
  Serious: Yes (Death, Hospitalization)
  Sender: FDA-Public Use
  Company Number: None

PATIENT
  Age: 76 Year
  Sex: Female
  Weight: 56.4 kg

DRUGS (21)
  1. PRADAXA [Suspect]
     Indication: ATRIAL FIBRILLATION
     Route: 048
     Dates: start: 20121108, end: 20131230
  2. ZOSYN [Concomitant]
  3. PROTONIX [Concomitant]
  4. CALCIUM GLUCONATE [Concomitant]
  5. FENTANYL [Concomitant]
  6. PRADAXA [Concomitant]
  7. ALBUTEROL [Concomitant]
  8. ATORVASTATIN [Concomitant]
  9. CITRACAL [Concomitant]
  10. CYANOCOBALMIN [Concomitant]
  11. DILTIAZEM ER [Concomitant]
  12. FLOVENT [Concomitant]
  13. LEVOTHYROXINE [Concomitant]
  14. LIDODERM [Concomitant]
  15. LISINOPRIL [Concomitant]
  16. OMEPRAZOLE [Concomitant]
  17. COMPAZINE [Concomitant]
  18. ROPINIROLE [Concomitant]
  19. PERCOCET [Concomitant]
  20. TRAMADOL [Concomitant]
  21. STOOL SOFTNER [Concomitant]

REACTIONS (9)
  - Pallor [None]
  - Haemoglobin decreased [None]
  - Intestinal ischaemia [None]
  - Hypothermia [None]
  - Acidosis [None]
  - Intra-abdominal haemorrhage [None]
  - Anuria [None]
  - Hypovolaemic shock [None]
  - General physical health deterioration [None]
